FAERS Safety Report 6900964-8 (Version None)
Quarter: 2010Q3

REPORT INFORMATION
  Report Type: 
  Country: None (occurrence: None)
  Receive Date: 20100730
  Receipt Date: 20100723
  Transmission Date: 20110219
  Serious: Yes (Hospitalization)
  Sender: FDA-Public Use
  Company Number: 016054

PATIENT
  Sex: Male

DRUGS (2)
  1. KEPPRA [Suspect]
     Dosage: 250 MG ORAL
     Route: 048
     Dates: start: 20100620, end: 20100622
  2. NEXIUM [Suspect]
     Dosage: 40 MG ORAL
     Route: 048
     Dates: start: 20100619, end: 20100622

REACTIONS (1)
  - PANCYTOPENIA [None]
